FAERS Safety Report 9490569 (Version 3)
Quarter: 2014Q3

REPORT INFORMATION
  Report Type: Spontaneous
  Country: US (occurrence: US)
  Receive Date: 20130830
  Receipt Date: 20140728
  Transmission Date: 20150326
  Serious: Yes (Hospitalization, Other)
  Sender: FDA-Public Use
  Company Number: US-AMGEN-USASP2013049739

PATIENT
  Age: 70 Year
  Sex: Female

DRUGS (5)
  1. PROLIA [Suspect]
     Active Substance: DENOSUMAB
     Indication: OSTEOPOROSIS POSTMENOPAUSAL
     Dosage: UNK UNK, Q6MO
     Route: 065
     Dates: start: 201209
  2. VITAMIN D3 [Concomitant]
     Active Substance: CHOLECALCIFEROL
     Dosage: 500 MG, TID
  3. COREG [Concomitant]
     Active Substance: CARVEDILOL
     Dosage: 6.25 UNK, BID
  4. CALCIUM [Concomitant]
     Active Substance: CALCIUM
     Dosage: 500 MG, TID
  5. LISINOPRIL. [Concomitant]
     Active Substance: LISINOPRIL
     Dosage: 20 MG, BID

REACTIONS (16)
  - Paraesthesia oral [Recovered/Resolved]
  - Loss of consciousness [Recovered/Resolved]
  - Carpal tunnel syndrome [Recovered/Resolved]
  - Vertigo [Recovered/Resolved]
  - Blood calcium decreased [Unknown]
  - Hospitalisation [Unknown]
  - Hypoaesthesia [Recovered/Resolved]
  - Hepatic enzyme abnormal [Unknown]
  - Weight decreased [Unknown]
  - Constipation [Unknown]
  - Hypoaesthesia oral [Unknown]
  - Paraesthesia [Not Recovered/Not Resolved]
  - Pruritus [Unknown]
  - Pollakiuria [Unknown]
  - Blood pressure fluctuation [Unknown]
  - Bone density abnormal [Unknown]

NARRATIVE: CASE EVENT DATE: 201209
